FAERS Safety Report 20472823 (Version 3)
Quarter: 2022Q2

REPORT INFORMATION
  Report Type: Report from Study
  Country: BE (occurrence: BE)
  Receive Date: 20220215
  Receipt Date: 20220412
  Transmission Date: 20220721
  Serious: Yes (Hospitalization)
  Sender: FDA-Public Use
  Company Number: BE-ABBVIE-22K-013-4277970-00

PATIENT
  Sex: Female

DRUGS (6)
  1. CARBIDOPA\LEVODOPA [Suspect]
     Active Substance: CARBIDOPA\LEVODOPA
     Indication: Parkinson^s disease
     Route: 050
     Dates: start: 20200602
  2. CARBIDOPA\LEVODOPA [Suspect]
     Active Substance: CARBIDOPA\LEVODOPA
     Dosage: MD 7.5 ML; CD 1.7 ML/HR DURING 24 HOUR; ED 1.5 ML; CND 1.0 ML/HR
     Route: 050
     Dates: start: 20211008, end: 20220211
  3. CARBIDOPA\LEVODOPA [Suspect]
     Active Substance: CARBIDOPA\LEVODOPA
     Dosage: MD 13.5 ML; CD 3.2 ML/HR DURING 24 HOURS; ED 2.4 ML; CND 0.5 ML/HR
     Route: 050
     Dates: start: 20220211, end: 20220309
  4. CARBIDOPA\LEVODOPA [Suspect]
     Active Substance: CARBIDOPA\LEVODOPA
     Dosage: MD 13.5 ML; CD 3.4 ML/HR DURING 24 HOURS; ED 2.4 ML; CND 0.5 ML
     Route: 050
     Dates: start: 20220309, end: 20220408
  5. CARBIDOPA\LEVODOPA [Suspect]
     Active Substance: CARBIDOPA\LEVODOPA
     Dosage: MD 0.0; CD 3.5 ML/HR DURING 16 HOURS; ED 2.6 ML; CND 0.5 ML/HR
     Route: 050
     Dates: start: 20220408
  6. REQUIP [Concomitant]
     Active Substance: ROPINIROLE HYDROCHLORIDE
     Indication: Parkinson^s disease
     Route: 048

REACTIONS (2)
  - Musculoskeletal disorder [Unknown]
  - On and off phenomenon [Recovering/Resolving]
